FAERS Safety Report 6256839-3 (Version None)
Quarter: 2009Q3

REPORT INFORMATION
  Report Type: 
  Country: None (occurrence: None)
  Receive Date: 20090706
  Receipt Date: 20090623
  Transmission Date: 20100115
  Serious: Yes (Other)
  Sender: FDA-Public Use
  Company Number: PHEH2008US00461

PATIENT
  Sex: Male

DRUGS (2)
  1. AREDIA [Suspect]
  2. ZOMETA [Suspect]

REACTIONS (9)
  - ANHEDONIA [None]
  - ANXIETY [None]
  - BONE DISORDER [None]
  - GOITRE [None]
  - HEPATOMEGALY [None]
  - INJURY [None]
  - OSTEONECROSIS [None]
  - PAIN [None]
  - SWELLING [None]
